FAERS Safety Report 5411033-0 (Version None)
Quarter: 2007Q3

REPORT INFORMATION
  Report Type: 
  Country: None (occurrence: None)
  Receive Date: 20070713
  Receipt Date: 20070608
  Transmission Date: 20080115
  Serious: No
  Sender: FDA-Public Use
  Company Number: 2007SP002202

PATIENT
  Sex: Male

DRUGS (3)
  1. LUNESTA [Suspect]
     Dosage: 3 MG; ORAL
     Route: 048
  2. VICODIN [Concomitant]
  3. DIAZEPAM [Concomitant]

REACTIONS (2)
  - HEADACHE [None]
  - NIGHTMARE [None]
